FAERS Safety Report 4647932-7 (Version None)
Quarter: 2005Q2

REPORT INFORMATION
  Report Type: 
  Country: None (occurrence: None)
  Receive Date: 20050426
  Receipt Date: 20050426
  Transmission Date: 20051028
  Serious: No
  Sender: FDA-Public Use
  Company Number: None

PATIENT

DRUGS (2)
  1. ASTRAMORPH PF [Suspect]
  2. ASTRAMORPH PF [Suspect]

REACTIONS (2)
  - ANAESTHESIA [None]
  - BODY TEMPERATURE DECREASED [None]
